FAERS Safety Report 25257010 (Version 1)
Quarter: 2025Q2

REPORT INFORMATION
  Report Type: Report from Study
  Country: BR (occurrence: BR)
  Receive Date: 20250430
  Receipt Date: 20250430
  Transmission Date: 20250716
  Serious: Yes (Other)
  Sender: UCB
  Company Number: BR-UCBSA-2025025186

PATIENT
  Sex: Male

DRUGS (1)
  1. LEVETIRACETAM [Suspect]
     Active Substance: LEVETIRACETAM
     Indication: Seizure cluster

REACTIONS (2)
  - Seizure [Unknown]
  - Hypersensitivity [Unknown]
